FAERS Safety Report 6981067-3 (Version None)
Quarter: 2010Q3

REPORT INFORMATION
  Report Type: 
  Country: None (occurrence: None)
  Receive Date: 20100914
  Receipt Date: 20100906
  Transmission Date: 20110219
  Serious: Yes (Hospitalization)
  Sender: FDA-Public Use
  Company Number: NL-ABBOTT-10P-114-0668894-00

PATIENT
  Sex: Female
  Weight: 85 kg

DRUGS (8)
  1. HUMIRA [Suspect]
     Indication: PSORIATIC ARTHROPATHY
     Route: 058
     Dates: start: 20060301, end: 20100830
  2. HYDROCHLOROTHIAZIDE [Concomitant]
     Indication: BLOOD PRESSURE
     Route: 048
     Dates: start: 20100501
  3. METHOTREXATE [Concomitant]
     Indication: PSORIATIC ARTHROPATHY
     Route: 058
     Dates: start: 20040101
  4. NIFEDIPINE [Concomitant]
     Indication: BLOOD PRESSURE
     Route: 048
     Dates: start: 20090101
  5. OMEPRAZOLE [Concomitant]
     Indication: GASTRIC DISORDER
     Route: 048
     Dates: start: 20090101
  6. OMEPRAZOLE [Concomitant]
     Indication: PROPHYLAXIS
  7. PIROXICAM [Concomitant]
     Indication: PSORIATIC ARTHROPATHY
     Route: 048
     Dates: start: 20040101
  8. FOLIC ACID [Concomitant]
     Indication: PSORIATIC ARTHROPATHY
     Route: 048
     Dates: start: 20040101

REACTIONS (4)
  - ANOXIA [None]
  - DYSPNOEA [None]
  - HYPERSENSITIVITY [None]
  - RESPIRATORY DISORDER [None]
